FAERS Safety Report 16821506 (Version 1)
Quarter: 2019Q3

REPORT INFORMATION
  Report Type: Spontaneous
  Country: US (occurrence: US)
  Receive Date: 20190918
  Receipt Date: 20190918
  Transmission Date: 20191005
  Serious: Yes (Hospitalization)
  Sender: FDA-Public Use
  Company Number: US-PFIZER INC-2019364845

PATIENT
  Age: 60 Year
  Sex: Female
  Weight: 109.75 kg

DRUGS (1)
  1. CELEBREX [Suspect]
     Active Substance: CELECOXIB
     Indication: PAIN
     Dosage: 200 MG
     Dates: start: 2008

REACTIONS (1)
  - Arthropathy [Recovered/Resolved]
